FAERS Safety Report 4634797-2 (Version None)
Quarter: 2005Q2

REPORT INFORMATION
  Report Type: 
  Country: None (occurrence: None)
  Receive Date: 20050412
  Receipt Date: 20050412
  Transmission Date: 20051028
  Serious: Yes (Hospitalization)
  Sender: FDA-Public Use
  Company Number: None

PATIENT
  Age: 76 Year
  Sex: Male
  Weight: 99.3377 kg

DRUGS (1)
  1. PRIMAXIN [Suspect]
     Indication: BILE DUCT STONE
     Dosage: 1000MG  Q8HRS  INTRAVENOU
     Route: 042
     Dates: start: 20050331, end: 20050408

REACTIONS (1)
  - DIARRHOEA [None]
